FAERS Safety Report 7584842-X (Version None)
Quarter: 2011Q2

REPORT INFORMATION
  Report Type: 
  Country: None (occurrence: None)
  Receive Date: 20110630
  Receipt Date: 20110624
  Transmission Date: 20111010
  Serious: Yes (Hospitalization)
  Sender: FDA-Public Use
  Company Number: PHHY2011US56784

PATIENT
  Age: 16 Year
  Sex: Male
  Weight: 32.109 kg

DRUGS (2)
  1. TOBI [Suspect]
     Dosage: 300 MG, BID IN A CYCLE OF 28 DAYS ON AND 28 DAYS OFF
     Dates: start: 20090330
  2. PULMOZYME [Concomitant]
     Dosage: 2.5 MG, BID

REACTIONS (1)
  - INFECTION [None]
